FAERS Safety Report 9120583 (Version 1)
Quarter: 2013Q1

REPORT INFORMATION
  Report Type: Spontaneous
  Country: US (occurrence: US)
  Receive Date: 20130226
  Receipt Date: 20130226
  Transmission Date: 20140127
  Serious: Yes (Death)
  Sender: FDA-Public Use
  Company Number: US-ROCHE-1194082

PATIENT
  Age: 48 Year
  Sex: Female

DRUGS (20)
  1. CLONAZEPAM [Suspect]
     Indication: PRODUCT USED FOR UNKNOWN INDICATION
     Route: 048
  2. CLONAZEPAM [Suspect]
     Dosage: OVERDOSE
     Route: 048
  3. PROPRANOLOL [Suspect]
     Indication: PRODUCT USED FOR UNKNOWN INDICATION
     Route: 048
  4. PROPRANOLOL [Suspect]
     Dosage: OVERDOSE
     Route: 048
  5. OXYCODONE [Suspect]
     Indication: PRODUCT USED FOR UNKNOWN INDICATION
     Route: 048
  6. OXYCODONE [Suspect]
     Dosage: OVERDOSE
     Route: 048
  7. TRAZODONE [Suspect]
     Indication: PRODUCT USED FOR UNKNOWN INDICATION
     Route: 048
  8. TRAZODONE [Suspect]
     Dosage: OVERDOSE
     Route: 048
  9. HYDROXYZINE [Suspect]
     Indication: PRODUCT USED FOR UNKNOWN INDICATION
     Route: 048
  10. HYDROXYZINE [Suspect]
     Dosage: OVERDOSE
     Route: 048
  11. RISPERIDONE [Suspect]
     Indication: PRODUCT USED FOR UNKNOWN INDICATION
     Route: 048
  12. RISPERIDONE [Suspect]
     Dosage: OVERDOSE
     Route: 048
  13. TEMAZEPAM [Suspect]
     Indication: PRODUCT USED FOR UNKNOWN INDICATION
     Route: 048
  14. TEMAZEPAM [Suspect]
     Dosage: OVERDOSE
     Route: 048
  15. BENZTROPINE [Suspect]
     Indication: PRODUCT USED FOR UNKNOWN INDICATION
     Route: 048
  16. BENZTROPINE [Suspect]
     Dosage: OVERDOSE
     Route: 048
  17. ESCITALOPRAM [Suspect]
     Indication: PRODUCT USED FOR UNKNOWN INDICATION
     Route: 048
  18. ESCITALOPRAM [Suspect]
     Dosage: OVERDOSE
     Route: 048
  19. ONDANSETRON [Suspect]
     Indication: PRODUCT USED FOR UNKNOWN INDICATION
     Route: 048
  20. ONDANSETRON [Suspect]
     Dosage: OVERDOSE
     Route: 048

REACTIONS (3)
  - Toxicity to various agents [Fatal]
  - Cardiac arrest [Fatal]
  - Respiratory arrest [Fatal]
